FAERS Safety Report 12342668 (Version 1)
Quarter: 2016Q2

REPORT INFORMATION
  Report Type: Spontaneous
  Country: GB (occurrence: GB)
  Receive Date: 20160506
  Receipt Date: 20160506
  Transmission Date: 20160815
  Serious: Yes (Life-Threatening)
  Sender: FDA-Public Use
  Company Number: GB-UCBSA-2015036503

PATIENT
  Sex: Male

DRUGS (2)
  1. VIRIDAL DUO [Suspect]
     Active Substance: ALPROSTADIL
     Dosage: 20 MCG EV 2 WEEKS(QOW)
  2. VIRIDAL DUO [Suspect]
     Active Substance: ALPROSTADIL
     Indication: ERECTILE DYSFUNCTION
     Dosage: 10MCG EV 2 WEEKS(QOW)

REACTIONS (8)
  - Product use issue [Unknown]
  - Pain [Unknown]
  - Off label use [Unknown]
  - Injection site mass [Unknown]
  - Drug ineffective [Unknown]
  - Gastric disorder [Unknown]
  - Inappropriate schedule of drug administration [Unknown]
  - Priapism [Unknown]
